FAERS Safety Report 9258454 (Version 1)
Quarter: 2013Q2

REPORT INFORMATION
  Report Type: Spontaneous
  Country: CH (occurrence: CH)
  Receive Date: 20130426
  Receipt Date: 20130426
  Transmission Date: 20140414
  Serious: Yes (Death)
  Sender: FDA-Public Use
  Company Number: PHHY2013CH040327

PATIENT
  Age: 81 Year
  Sex: Female
  Weight: 60 kg

DRUGS (6)
  1. SINTROM 1 MITIS [Suspect]
     Indication: EMBOLISM VENOUS
     Dosage: UNK UKN, UNK
     Route: 048
     Dates: start: 1998
  2. CITALOPRAM [Suspect]
     Dosage: 20 MG, QD
     Route: 048
     Dates: start: 2011
  3. ALLOPUR [Concomitant]
     Dosage: 300 MG, QD
     Route: 048
  4. COAPROVEL [Concomitant]
     Dosage: 2 DF, QD
     Route: 048
  5. CRESTOR [Concomitant]
     Dosage: 10 MG, QD
     Route: 048
  6. TORASIS [Concomitant]
     Dosage: 10 MG, UNK
     Route: 048

REACTIONS (8)
  - Cerebral haemorrhage [Fatal]
  - Coma [Fatal]
  - Mydriasis [Fatal]
  - Areflexia [Fatal]
  - Hypopnoea [Fatal]
  - Haemodynamic instability [Fatal]
  - Hypotension [Fatal]
  - Coma scale abnormal [Fatal]
